FAERS Safety Report 11173835 (Version 1)
Quarter: 2015Q2

REPORT INFORMATION
  Report Type: Spontaneous
  Country: US (occurrence: None)
  Receive Date: 20150608
  Receipt Date: 20150608
  Transmission Date: 20150821
  Serious: Yes (Hospitalization)
  Sender: FDA-Public Use
  Company Number: None

PATIENT
  Age: 54 Year
  Sex: Male
  Weight: 95.71 kg

DRUGS (7)
  1. OMEPRAZOLE (PRILOSEC) [Concomitant]
  2. TRIAMCINOLONE (KENALOG) [Concomitant]
  3. METFORMIN (GLUCOPHAGE) [Concomitant]
  4. VICTOZA [Suspect]
     Active Substance: LIRAGLUTIDE
     Indication: DIABETES MELLITUS
     Route: 058
     Dates: start: 20120921, end: 20150207
  5. TELMISARTAN (MICARDIS) [Concomitant]
  6. GLIPIZIDE (GLUCOTROL) [Concomitant]
  7. GLARGINE INSULIN [Concomitant]
     Active Substance: INSULIN GLARGINE

REACTIONS (1)
  - Pancreatitis [None]

NARRATIVE: CASE EVENT DATE: 20150207
